FAERS Safety Report 12069445 (Version 1)
Quarter: 2016Q1

REPORT INFORMATION
  Report Type: Spontaneous
  Country: US (occurrence: US)
  Receive Date: 20160211
  Receipt Date: 20160211
  Transmission Date: 20160526
  Serious: No
  Sender: FDA-Public Use
  Company Number: US-ASTRAZENECA-2016SE11523

PATIENT
  Age: 23454 Day
  Sex: Female
  Weight: 54.9 kg

DRUGS (2)
  1. CRESTOR [Suspect]
     Active Substance: ROSUVASTATIN CALCIUM
     Indication: BLOOD CHOLESTEROL INCREASED
     Route: 048
     Dates: start: 2009
  2. TEMAZEPAM. [Concomitant]
     Active Substance: TEMAZEPAM
     Indication: SLEEP DISORDER
     Route: 048

REACTIONS (6)
  - Osteoarthritis [Unknown]
  - Pain in extremity [Unknown]
  - Drug dose omission [Unknown]
  - Anxiety [Unknown]
  - Memory impairment [Unknown]
  - Arthritis [Unknown]

NARRATIVE: CASE EVENT DATE: 20160125
